FAERS Safety Report 10719851 (Version 1)
Quarter: 2015Q1

REPORT INFORMATION
  Report Type: Spontaneous
  Country: US (occurrence: US)
  Receive Date: 20150119
  Receipt Date: 20150119
  Transmission Date: 20150721
  Serious: No
  Sender: FDA-Public Use
  Company Number: US-BIOGENIDEC-2015BI005013

PATIENT
  Age: 50 Year
  Sex: Female

DRUGS (1)
  1. TECFIDERA [Suspect]
     Active Substance: DIMETHYL FUMARATE
     Indication: MULTIPLE SCLEROSIS
     Route: 048
     Dates: start: 20140521

REACTIONS (8)
  - Alopecia [Unknown]
  - Erythema [Recovered/Resolved]
  - Dyspepsia [Not Recovered/Not Resolved]
  - Feeling hot [Recovered/Resolved]
  - Skin warm [Recovered/Resolved]
  - Sinusitis [Unknown]
  - Weight increased [Unknown]
  - Flushing [Recovered/Resolved]

NARRATIVE: CASE EVENT DATE: 20140521
